FAERS Safety Report 5929088-3 (Version None)
Quarter: 2008Q4

REPORT INFORMATION
  Report Type: 
  Country: None (occurrence: None)
  Receive Date: 20081024
  Receipt Date: 20081020
  Transmission Date: 20090506
  Serious: Yes (Death)
  Sender: FDA-Public Use
  Company Number: JP-WYE-H06510008

PATIENT
  Sex: Male

DRUGS (12)
  1. ANCARON [Suspect]
     Indication: VENTRICULAR FIBRILLATION
     Dosage: 10 ML/MIN
     Route: 042
     Dates: start: 20080917, end: 20080917
  2. ANCARON [Suspect]
     Dosage: 33 ML/HR
     Route: 042
     Dates: start: 20080917, end: 20080917
  3. ANCARON [Suspect]
     Dosage: 17 ML/HR
     Route: 042
     Dates: start: 20080917, end: 20080919
  4. BOSMIN [Concomitant]
     Route: 042
     Dates: start: 20080917, end: 20080917
  5. ATROPINE SULFATE [Concomitant]
     Route: 042
     Dates: start: 20080917, end: 20080917
  6. AMIYU [Concomitant]
     Dates: start: 20080925, end: 20081004
  7. ASPIRIN [Concomitant]
     Dates: start: 20080905, end: 20081004
  8. LANSOPRAZOLE [Concomitant]
     Dosage: 15 MG EVERY
     Dates: start: 20080905, end: 20081004
  9. MAGNESIUM OXIDE [Concomitant]
     Dates: start: 20080905, end: 20081004
  10. FRANDOL [Concomitant]
     Dosage: 40 MG EVERY
     Route: 003
     Dates: start: 20080905, end: 20081004
  11. PLAVIX [Concomitant]
     Route: 048
     Dates: start: 20080905, end: 20081004
  12. PLETAL [Concomitant]
     Dates: start: 20080905, end: 20081004

REACTIONS (1)
  - LIVER DISORDER [None]
